FAERS Safety Report 8378593-1 (Version None)
Quarter: 2012Q2

REPORT INFORMATION
  Report Type: 
  Country: None (occurrence: None)
  Receive Date: 20120522
  Receipt Date: 20110714
  Transmission Date: 20120825
  Serious: No
  Sender: FDA-Public Use
  Company Number: US-ASTRAZENECA-2011SE42451

PATIENT

DRUGS (12)
  1. ABILIFY [Concomitant]
  2. PRILOSEC [Suspect]
     Route: 048
  3. COREG [Concomitant]
  4. SOME COMPOUND [Concomitant]
  5. GABAPENTIN [Concomitant]
  6. DECONGESTANTS [Concomitant]
  7. LEXAPRO [Concomitant]
  8. BENADRYL [Concomitant]
  9. TEMAZEPAM [Concomitant]
  10. SINGULAIR [Concomitant]
  11. ATIVAN [Concomitant]
  12. LORTAB [Concomitant]

REACTIONS (8)
  - RENAL CYST [None]
  - NAUSEA [None]
  - HIATUS HERNIA [None]
  - ABDOMINAL DISCOMFORT [None]
  - COLITIS [None]
  - ABDOMINAL PAIN UPPER [None]
  - HAEMATURIA [None]
  - DRUG INEFFECTIVE [None]
